FAERS Safety Report 6587834-2 (Version None)
Quarter: 2010Q1

REPORT INFORMATION
  Report Type: 
  Country: None (occurrence: None)
  Receive Date: 20100218
  Receipt Date: 20100215
  Transmission Date: 20100710
  Serious: Yes (Death)
  Sender: FDA-Public Use
  Company Number: PHHY2010MX08253

PATIENT
  Age: 79 Year
  Sex: Male

DRUGS (1)
  1. DIOVAN [Suspect]
     Indication: HYPERTENSION
     Dosage: 2 TABLETS (80 MG) PER DAY
     Route: 048
     Dates: start: 20080301

REACTIONS (1)
  - MYOCARDIAL INFARCTION [None]
